FAERS Safety Report 23090360 (Version 1)
Quarter: 2023Q4

REPORT INFORMATION
  Report Type: Spontaneous
  Country: US (occurrence: US)
  Receive Date: 20231020
  Receipt Date: 20231020
  Transmission Date: 20240110
  Serious: Yes (Other)
  Sender: FDA-Public Use
  Company Number: US-PFIZER INC-PV202300169389

PATIENT
  Age: 3 Year
  Sex: Female

DRUGS (5)
  1. DOXORUBICIN HYDROCHLORIDE [Suspect]
     Active Substance: DOXORUBICIN HYDROCHLORIDE
     Indication: Nephroblastoma
     Dosage: 30 MG/M2
  2. ACTINOMYCIN D [Suspect]
     Active Substance: DACTINOMYCIN
     Indication: Nephroblastoma
     Dosage: 15 UG/KG/DAY
  3. ACTINOMYCIN D [Suspect]
     Active Substance: DACTINOMYCIN
     Dosage: GIVEN ON THE FIRST AND FIFTH DAYS OF THE COURSE
  4. VINCRISTINE [Suspect]
     Active Substance: VINCRISTINE
     Indication: Nephroblastoma
     Dosage: EIGHT WEEKLY DOSES OF VINCRISTINE 1.5 MG/M2
  5. VINCRISTINE [Suspect]
     Active Substance: VINCRISTINE
     Dosage: GIVEN ON THE FIRST AND FIFTH DAYS OF THE COURSE

REACTIONS (2)
  - Hepatomegaly [Recovered/Resolved]
  - Ascites [Recovered/Resolved]
